FAERS Safety Report 8092002-1 (Version None)
Quarter: 2012Q1

REPORT INFORMATION
  Report Type: 
  Country: None (occurrence: None)
  Receive Date: 20120131
  Receipt Date: 20120130
  Transmission Date: 20120608
  Serious: Yes (Hospitalization)
  Sender: FDA-Public Use
  Company Number: US-JNJFOC-20111203862

PATIENT
  Sex: Male
  Weight: 72.58 kg

DRUGS (8)
  1. LASIX [Concomitant]
     Dosage: IN AM
     Route: 048
  2. LEVAQUIN [Suspect]
     Indication: INFECTION PROPHYLAXIS
     Route: 048
     Dates: end: 20111109
  3. FLOMAX [Concomitant]
     Indication: PROSTATIC DISORDER
     Route: 048
  4. COREG [Concomitant]
     Indication: CARDIAC DISORDER
     Route: 048
  5. MULTI-VITAMINS [Concomitant]
     Indication: NUTRITIONAL SUPPORT
     Route: 048
  6. DIGOXIN [Concomitant]
     Indication: CARDIAC DISORDER
     Route: 048
  7. LASIX [Concomitant]
     Indication: OEDEMA PERIPHERAL
     Dosage: IN PM
     Route: 048
  8. SIMVASTATIN [Concomitant]
     Indication: BLOOD CHOLESTEROL
     Route: 048

REACTIONS (6)
  - IMPAIRED HEALING [None]
  - INFECTION [None]
  - DRUG INEFFECTIVE [None]
  - INFECTION MASKED [None]
  - HYPOTHYROIDISM [None]
  - INTESTINAL POLYP HAEMORRHAGE [None]
